FAERS Safety Report 14365081 (Version 1)
Quarter: 2018Q1

REPORT INFORMATION
  Report Type: Spontaneous
  Country: US (occurrence: US)
  Receive Date: 20180108
  Receipt Date: 20180108
  Transmission Date: 20180509
  Serious: No
  Sender: FDA-Public Use
  Company Number: US-ROCHE-1988569

PATIENT
  Age: 72 Year
  Sex: Male

DRUGS (2)
  1. ACTIVASE [Suspect]
     Active Substance: ALTEPLASE
     Indication: PRODUCT USED FOR UNKNOWN INDICATION
     Dosage: WENT UP AT 10:37 ;ONGOING: NO
     Route: 040
     Dates: start: 20170222
  2. ACTIVASE [Suspect]
     Active Substance: ALTEPLASE
     Dosage: WENT UP AT 10:38 ;ONGOING: NO
     Route: 041
     Dates: start: 20170222

REACTIONS (2)
  - Urticaria [Recovered/Resolved]
  - Lip swelling [Recovered/Resolved]

NARRATIVE: CASE EVENT DATE: 20170222
